FAERS Safety Report 5975859-7 (Version None)
Quarter: 2008Q4

REPORT INFORMATION
  Report Type: 
  Country: None (occurrence: None)
  Receive Date: 20081202
  Receipt Date: 20081126
  Transmission Date: 20090506
  Serious: Yes (Hospitalization)
  Sender: FDA-Public Use
  Company Number: A0758764A

PATIENT
  Age: 78 Year
  Sex: Male
  Weight: 103.2 kg

DRUGS (1)
  1. AVANDIA [Suspect]
     Dosage: 4MG PER DAY
     Route: 065
     Dates: start: 20060427, end: 20061127

REACTIONS (8)
  - CARDIAC FAILURE CONGESTIVE [None]
  - GANGRENE [None]
  - MYOCARDIAL INFARCTION [None]
  - OEDEMA [None]
  - OEDEMA PERIPHERAL [None]
  - OSTEOMYELITIS [None]
  - RENAL DISORDER [None]
  - SKIN ULCER [None]
